FAERS Safety Report 6735960-7 (Version None)
Quarter: 2010Q2

REPORT INFORMATION
  Report Type: 
  Country: None (occurrence: None)
  Receive Date: 20100521
  Receipt Date: 20100511
  Transmission Date: 20101027
  Serious: Yes (Hospitalization)
  Sender: FDA-Public Use
  Company Number: B0653355A

PATIENT
  Age: 28 Year
  Sex: Male
  Weight: 54 kg

DRUGS (5)
  1. LAMIVUDINE-HIV [Suspect]
     Indication: HIV INFECTION
     Route: 065
  2. STAVUDINE [Suspect]
     Indication: HIV INFECTION
     Route: 065
  3. NEVIRAPINE [Suspect]
     Indication: HIV INFECTION
     Route: 065
  4. FLUCONAZOLE [Concomitant]
     Route: 065
  5. COTRIM [Concomitant]
     Route: 065

REACTIONS (5)
  - IMMUNE RECONSTITUTION SYNDROME [None]
  - INFECTION [None]
  - SKIN LESION [None]
  - SKIN NECROSIS [None]
  - SKIN NODULE [None]
